FAERS Safety Report 20550765 (Version 2)
Quarter: 2022Q3

REPORT INFORMATION
  Report Type: Report from Study
  Country: US (occurrence: US)
  Receive Date: 20220304
  Receipt Date: 20220905
  Transmission Date: 20221026
  Serious: Yes (Other)
  Sender: FDA-Public Use
  Company Number: US-ABBVIE-22K-163-4246623-00

PATIENT
  Age: 47 Year
  Sex: Male
  Weight: 76.045 kg

DRUGS (2)
  1. HUMIRA [Suspect]
     Active Substance: ADALIMUMAB
     Indication: Crohn^s disease
     Dosage: CITRATE FREE
     Route: 058
  2. HUMIRA [Suspect]
     Active Substance: ADALIMUMAB
     Dosage: CITRATE FREE
     Route: 058

REACTIONS (5)
  - Skin lesion [Not Recovered/Not Resolved]
  - Basal cell carcinoma [Not Recovered/Not Resolved]
  - Therapeutic response shortened [Unknown]
  - Crohn^s disease [Unknown]
  - Heavy exposure to ultraviolet light [Unknown]

NARRATIVE: CASE EVENT DATE: 20220110
